FAERS Safety Report 17310637 (Version 1)
Quarter: 2020Q1

REPORT INFORMATION
  Report Type: Spontaneous
  Country: US (occurrence: US)
  Receive Date: 20200123
  Receipt Date: 20200123
  Transmission Date: 20200409
  Serious: No
  Sender: FDA-Public Use
  Company Number: US-ROCHE-2466702

PATIENT
  Age: 62 Year
  Sex: Female

DRUGS (1)
  1. RITUXAN [Suspect]
     Active Substance: RITUXIMAB
     Indication: PRODUCT USED FOR UNKNOWN INDICATION
     Dosage: ONGOING:YES, FREQUENCY: OTHER
     Route: 041
     Dates: start: 201901

REACTIONS (2)
  - Hallucination [Unknown]
  - Mental impairment [Unknown]

NARRATIVE: CASE EVENT DATE: 20190504
